FAERS Safety Report 4727419-3 (Version None)
Quarter: 2005Q3

REPORT INFORMATION
  Report Type: 
  Country: None (occurrence: None)
  Receive Date: 20050727
  Receipt Date: 20050727
  Transmission Date: 20060218
  Serious: Yes (Hospitalization)
  Sender: FDA-Public Use
  Company Number: None

PATIENT
  Age: 45 Year
  Sex: Male
  Weight: 108.8633 kg

DRUGS (4)
  1. NUBAIN [Suspect]
     Indication: PAIN
     Dates: start: 20050322
  2. METHADONE [Concomitant]
  3. CYMBALTA [Concomitant]
  4. ROCEPHIN [Concomitant]

REACTIONS (6)
  - AGGRESSION [None]
  - AGITATION [None]
  - CONVULSION [None]
  - DISORIENTATION [None]
  - DRUG WITHDRAWAL SYNDROME [None]
  - LOSS OF CONSCIOUSNESS [None]
